FAERS Safety Report 24723624 (Version 7)
Quarter: 2025Q4

REPORT INFORMATION
  Report Type: Spontaneous
  Country: US (occurrence: US)
  Receive Date: 20241211
  Receipt Date: 20251226
  Transmission Date: 20260117
  Serious: Yes (Hospitalization)
  Sender: SANOFI AVENTIS
  Company Number: US-SA-2024SA364766

PATIENT
  Age: 22 Year
  Sex: Female

DRUGS (2)
  1. DUPIXENT [Suspect]
     Active Substance: DUPILUMAB
     Indication: Dermatitis atopic
     Dosage: 300 MG, QOW
     Route: 058
     Dates: start: 20241101
  2. XOLAIR [Concomitant]
     Active Substance: OMALIZUMAB
     Dosage: UNK

REACTIONS (10)
  - Vomiting [Unknown]
  - Impaired quality of life [Not Recovered/Not Resolved]
  - Asthma [Not Recovered/Not Resolved]
  - Sleep disorder due to a general medical condition [Unknown]
  - Discomfort [Unknown]
  - Oropharyngeal pain [Unknown]
  - Headache [Unknown]
  - Rash [Unknown]
  - Dermatitis atopic [Unknown]
  - Blepharitis [Unknown]

NARRATIVE: CASE EVENT DATE: 20240101
